FAERS Safety Report 18307076 (Version 1)
Quarter: 2020Q3

REPORT INFORMATION
  Report Type: Spontaneous
  Country: US (occurrence: US)
  Receive Date: 20200924
  Receipt Date: 20200924
  Transmission Date: 20201103
  Serious: Yes (Death, Other)
  Sender: FDA-Public Use
  Company Number: US-AMGEN-USASP2020151020

PATIENT
  Age: 78 Year
  Sex: Male

DRUGS (1)
  1. DARBEPOETIN ALFA [Suspect]
     Active Substance: DARBEPOETIN ALFA
     Indication: MYELODYSPLASTIC SYNDROME
     Dosage: UNK
     Route: 065

REACTIONS (7)
  - Gastrointestinal toxicity [Unknown]
  - Tumour lysis syndrome [Recovered/Resolved]
  - Neutropenia [Not Recovered/Not Resolved]
  - Chronic myeloid leukaemia [Unknown]
  - Acute myeloid leukaemia [Unknown]
  - Infection [Fatal]
  - Blastic plasmacytoid dendritic cell neoplasia [Recovering/Resolving]
